FAERS Safety Report 19639749 (Version 1)
Quarter: 2021Q3

REPORT INFORMATION
  Report Type: Spontaneous
  Country: MY (occurrence: MY)
  Receive Date: 20210730
  Receipt Date: 20210730
  Transmission Date: 20211014
  Serious: Yes (Death)
  Sender: FDA-Public Use
  Company Number: MY-ALVOGEN-2021-ALVOGEN-117275

PATIENT
  Age: 78 Year
  Sex: Male

DRUGS (5)
  1. CLAVULANATE POTASSIUM [Suspect]
     Active Substance: CLAVULANATE POTASSIUM
     Indication: CLOSTRIDIUM BACTERAEMIA
  2. METRONIDAZOLE SODIUM [Suspect]
     Active Substance: METRONIDAZOLE SODIUM
     Indication: CLOSTRIDIUM BACTERAEMIA
  3. AMOXICILLIN. [Suspect]
     Active Substance: AMOXICILLIN
     Indication: CLOSTRIDIUM BACTERAEMIA
  4. CLINDAMYCIN. [Suspect]
     Active Substance: CLINDAMYCIN
     Indication: CLOSTRIDIUM BACTERAEMIA
  5. IMIPENEM [Suspect]
     Active Substance: IMIPENEM
     Indication: CLOSTRIDIUM BACTERAEMIA

REACTIONS (1)
  - Drug ineffective [Fatal]
